FAERS Safety Report 20839851 (Version 2)
Quarter: 2022Q2

REPORT INFORMATION
  Report Type: Spontaneous
  Country: DE (occurrence: DE)
  Receive Date: 20220517
  Receipt Date: 20220601
  Transmission Date: 20220721
  Serious: Yes (Hospitalization)
  Sender: FDA-Public Use
  Company Number: DE-DSJP-DSE-2022-116171

PATIENT
  Age: 76 Year
  Sex: Female
  Weight: 74 kg

DRUGS (6)
  1. EDOXABAN TOSYLATE [Suspect]
     Active Substance: EDOXABAN TOSYLATE
     Indication: Arrhythmia
     Dosage: 60 MG, QD
     Route: 065
     Dates: end: 20220305
  2. EDOXABAN TOSYLATE [Suspect]
     Active Substance: EDOXABAN TOSYLATE
     Indication: Cardiac failure
     Dosage: 60 MG, QD
     Route: 065
     Dates: start: 202203, end: 20220329
  3. EDOXABAN TOSYLATE [Suspect]
     Active Substance: EDOXABAN TOSYLATE
     Dosage: 60 MG, QD
     Route: 065
     Dates: start: 2022
  4. SIMVASTATIN [Concomitant]
     Active Substance: SIMVASTATIN
     Indication: Product used for unknown indication
     Dosage: 20 MG, QD, EVERY EVENING
     Route: 065
  5. JARDIANCE [Concomitant]
     Active Substance: EMPAGLIFLOZIN
     Indication: Product used for unknown indication
     Dosage: 10 MG, QD
     Route: 065
  6. CHOLECALCIFEROL [Concomitant]
     Active Substance: CHOLECALCIFEROL
     Indication: Product used for unknown indication
     Dosage: UNK UNK, ONCE EVERY 1 WK
     Route: 065

REACTIONS (5)
  - Retinal artery embolism [Recovered/Resolved with Sequelae]
  - Tooth extraction [Recovered/Resolved]
  - Tooth extraction [Recovered/Resolved]
  - Tooth extraction [Recovered/Resolved]
  - Off label use [Not Recovered/Not Resolved]

NARRATIVE: CASE EVENT DATE: 20220305
